FAERS Safety Report 9503054 (Version 2)
Quarter: 2013Q3

REPORT INFORMATION
  Report Type: Report from Study
  Country: US (occurrence: US)
  Receive Date: 20130906
  Receipt Date: 20130906
  Transmission Date: 20140515
  Serious: Yes (Hospitalization, Other)
  Sender: FDA-Public Use
  Company Number: PHHO2010US13116

PATIENT
  Age: 62 Year
  Sex: Male
  Weight: 97.8 kg

DRUGS (4)
  1. ALISKIREN [Suspect]
     Indication: CORONARY ARTERY DISEASE
     Dosage: 300 MG, UNK
     Route: 048
     Dates: start: 20100707, end: 20100731
  2. ALISKIREN [Suspect]
     Dosage: 150 MG, UNK
  3. LISINOPRIL [Concomitant]
     Indication: HYPERTENSION
  4. METOPROLOL [Concomitant]
     Indication: HYPERTENSION

REACTIONS (7)
  - Hypotension [Recovered/Resolved]
  - Syncope [Recovered/Resolved]
  - Feeling hot [Recovered/Resolved]
  - Vomiting [Unknown]
  - Diarrhoea [Unknown]
  - Weight decreased [Unknown]
  - Decreased appetite [Unknown]
